FAERS Safety Report 6669806-2 (Version None)
Quarter: 2010Q2

REPORT INFORMATION
  Report Type: 
  Country: None (occurrence: None)
  Receive Date: 20100402
  Receipt Date: 20100324
  Transmission Date: 20101027
  Serious: Yes (Hospitalization)
  Sender: FDA-Public Use
  Company Number: 2010SP018150

PATIENT
  Age: 72 Year
  Sex: Male

DRUGS (16)
  1. REMERON [Suspect]
     Indication: DRUG USE FOR UNKNOWN INDICATION
     Dosage: 30 MG;QD;PO
     Route: 048
     Dates: start: 20091001
  2. METOPROLOL TARTRATE [Suspect]
     Indication: DRUG USE FOR UNKNOWN INDICATION
     Dosage: 50 MG;QD;PO
     Route: 048
     Dates: start: 20080311
  3. METOPROLOL TARTRATE [Suspect]
     Indication: DRUG USE FOR UNKNOWN INDICATION
     Dosage: 50 MG;QD;PO
     Route: 048
     Dates: start: 20100301
  4. PROZAC [Suspect]
     Indication: DRUG USE FOR UNKNOWN INDICATION
     Dosage: 10 MG;QD;PO
     Route: 048
     Dates: start: 20091001
  5. NEURONTIN [Concomitant]
  6. CLONAZEPAM [Concomitant]
  7. TRIATEC [Concomitant]
  8. ASPIRIN [Concomitant]
  9. TOTALIP [Concomitant]
  10. NOVONORM [Concomitant]
  11. OMEPRAZEN [Concomitant]
  12. CARVASIN [Concomitant]
  13. DISIPAL [Concomitant]
  14. PLAVIX [Concomitant]
  15. TAVOR [Concomitant]
  16. CLOPIXOL [Concomitant]

REACTIONS (5)
  - DISEASE RECURRENCE [None]
  - DRUG INTERACTION [None]
  - EXTRAPYRAMIDAL DISORDER [None]
  - HYPOKINESIA [None]
  - SINUS BRADYCARDIA [None]
